FAERS Safety Report 21401369 (Version 1)
Quarter: 2022Q4

REPORT INFORMATION
  Report Type: Spontaneous
  Country: US (occurrence: US)
  Receive Date: 20221003
  Receipt Date: 20221003
  Transmission Date: 20230113
  Serious: No
  Sender: FDA-Public Use
  Company Number: US-AUROBINDO-AUR-APL-2022-026363

PATIENT
  Age: 39 Year
  Sex: Female

DRUGS (1)
  1. SUMATRIPTAN [Suspect]
     Active Substance: SUMATRIPTAN
     Indication: Migraine
     Dosage: 1 DOSAGE FORM, ONCE A DAY
     Route: 065
     Dates: start: 20220701, end: 20220705

REACTIONS (8)
  - Nausea [Recovering/Resolving]
  - Neck pain [Unknown]
  - Musculoskeletal stiffness [Unknown]
  - Vomiting [Recovering/Resolving]
  - Dizziness [Recovering/Resolving]
  - Illness [Recovering/Resolving]
  - Food poisoning [Recovering/Resolving]
  - Headache [Not Recovered/Not Resolved]

NARRATIVE: CASE EVENT DATE: 20220701
